FAERS Safety Report 22602787 (Version 1)
Quarter: 2023Q2

REPORT INFORMATION
  Report Type: Report from Study
  Country: US (occurrence: US)
  Receive Date: 20230615
  Receipt Date: 20230615
  Transmission Date: 20230722
  Serious: Yes (Death, Other)
  Sender: FDA-Public Use
  Company Number: US-SPECTRUM PHARMACEUTICALS, INC.-17-Z-US-00286

PATIENT

DRUGS (7)
  1. MELPHALAN [Suspect]
     Active Substance: MELPHALAN
     Indication: Surgical preconditioning
     Dosage: 100 MG/M2, QD, ON DAY-2 AND -1
     Route: 065
  2. MELPHALAN [Suspect]
     Active Substance: MELPHALAN
     Indication: Plasma cell myeloma
  3. ZEVALIN [Suspect]
     Active Substance: IBRITUMOMAB TIUXETAN
     Indication: Non-Hodgkin^s lymphoma
     Dosage: 16 GY, SINGLE, ON DAY- 14
     Route: 042
  4. ZEVALIN [Suspect]
     Active Substance: IBRITUMOMAB TIUXETAN
     Dosage: UNK- ON DAY- 22
     Route: 042
  5. RITUXIMAB [Suspect]
     Active Substance: RITUXIMAB
     Indication: Surgical preconditioning
     Dosage: 250 MG/M2, SINGLE, ON DAY- 14
     Route: 042
  6. RITUXIMAB [Suspect]
     Active Substance: RITUXIMAB
     Indication: Plasma cell myeloma
     Dosage: 250 MG/M2, SINGLE, ON DAY- 22
     Route: 042
  7. SARGRAMOSTIM [Concomitant]
     Active Substance: SARGRAMOSTIM
     Indication: Product used for unknown indication
     Dosage: (GM-CSF, DAY 0)
     Route: 065

REACTIONS (1)
  - Pneumonia cytomegaloviral [Fatal]
